FAERS Safety Report 24963276 (Version 2)
Quarter: 2025Q1

REPORT INFORMATION
  Report Type: Spontaneous
  Country: US (occurrence: US)
  Receive Date: 20250213
  Receipt Date: 20250221
  Transmission Date: 20250409
  Serious: Yes (Other)
  Sender: NOVO NORDISK
  Company Number: US-NOVOPROD-1367167

PATIENT
  Age: 71 Year
  Sex: Female

DRUGS (6)
  1. NOVOLOG [Suspect]
     Active Substance: INSULIN ASPART
     Route: 058
     Dates: start: 2000
  2. NOVOLOG [Suspect]
     Active Substance: INSULIN ASPART
     Indication: Type 2 diabetes mellitus
     Route: 058
     Dates: start: 2000
  3. NOVOLOG [Suspect]
     Active Substance: INSULIN ASPART
     Dosage: 2 IU, QD
     Route: 058
     Dates: start: 2000
  4. NOVOLOG [Suspect]
     Active Substance: INSULIN ASPART
     Route: 058
     Dates: start: 2000
  5. NOVOLOG [Suspect]
     Active Substance: INSULIN ASPART
     Route: 058
     Dates: start: 2000
  6. LANTUS [Suspect]
     Active Substance: INSULIN GLARGINE
     Indication: Type 2 diabetes mellitus
     Route: 058

REACTIONS (17)
  - Myocardial infarction [Unknown]
  - Cataract [Unknown]
  - Blood pressure increased [Unknown]
  - Cardiac disorder [Unknown]
  - Blindness [Unknown]
  - Weight decreased [Unknown]
  - Weight increased [Recovered/Resolved]
  - Peripheral swelling [Not Recovered/Not Resolved]
  - Pain in extremity [Not Recovered/Not Resolved]
  - Dysphonia [Unknown]
  - Dysstasia [Unknown]
  - Gait inability [Unknown]
  - Blood disorder [Unknown]
  - Injection site pain [Unknown]
  - Blood glucose fluctuation [Unknown]
  - Blood glucose increased [Unknown]
  - Product dose omission issue [Unknown]

NARRATIVE: CASE EVENT DATE: 20100101
